FAERS Safety Report 12350196 (Version 1)
Quarter: 2016Q2

REPORT INFORMATION
  Report Type: Spontaneous
  Country: US (occurrence: None)
  Receive Date: 20160509
  Receipt Date: 20160509
  Transmission Date: 20160815
  Serious: No
  Sender: FDA-Public Use
  Company Number: None

PATIENT
  Age: 56 Year
  Sex: Female
  Weight: 75.75 kg

DRUGS (1)
  1. ELIQUIS [Suspect]
     Active Substance: APIXABAN
     Dosage: 5MG TWO PO BID X 6 DAYS PO
     Route: 048
     Dates: start: 20160415

REACTIONS (2)
  - Product packaging quantity issue [None]
  - Drug prescribing error [None]

NARRATIVE: CASE EVENT DATE: 20160506
